FAERS Safety Report 11577957 (Version 1)
Quarter: 2015Q3

REPORT INFORMATION
  Report Type: Spontaneous
  Country: US (occurrence: US)
  Receive Date: 20150916
  Receipt Date: 20150916
  Transmission Date: 20151125
  Serious: No
  Sender: FDA-Public Use
  Company Number: US-ELI_LILLY_AND_COMPANY-US201306007847

PATIENT
  Sex: Male

DRUGS (1)
  1. HUMALOG [Suspect]
     Active Substance: INSULIN LISPRO
     Indication: DIABETES MELLITUS
     Dosage: 28 U, QD

REACTIONS (5)
  - Hypoaesthesia [Unknown]
  - Injection site pain [Unknown]
  - Burning sensation [Unknown]
  - Injection site bruising [Unknown]
  - Incorrect product storage [Unknown]
